FAERS Safety Report 7787758-9 (Version None)
Quarter: 2011Q3

REPORT INFORMATION
  Report Type: 
  Country: None (occurrence: None)
  Receive Date: 20110929
  Receipt Date: 20110907
  Transmission Date: 20111222
  Serious: Yes (Hospitalization)
  Sender: FDA-Public Use
  Company Number: DE-ASTRAZENECA-2011SE10365

PATIENT
  Age: 316 Month
  Sex: Male
  Weight: 105 kg

DRUGS (4)
  1. EFEREX [Concomitant]
     Route: 048
  2. SEROQUEL XR [Suspect]
     Indication: SCHIZOPHRENIA, PARANOID TYPE
     Route: 048
     Dates: start: 20100301, end: 20110201
  3. SEROQUEL XR [Suspect]
     Route: 048
     Dates: start: 20110201, end: 20110301
  4. SEROQUEL XR [Suspect]
     Route: 048
     Dates: start: 20110501

REACTIONS (5)
  - BLOOD CREATINE PHOSPHOKINASE INCREASED [None]
  - MYOGLOBIN BLOOD INCREASED [None]
  - RESTLESSNESS [None]
  - TENSION [None]
  - SENSORY DISTURBANCE [None]
